FAERS Safety Report 7713998 (Version 2)
Quarter: 2013Q3

REPORT INFORMATION
  Report Type: Report from Study
  Country: BR (occurrence: BR)
  Receive Date: 20101216
  Receipt Date: 20130723
  Transmission Date: 20140515
  Serious: Yes (Other)
  Sender: FDA-Public Use
  Company Number: PHHY2010BR82172

PATIENT
  Age: 85 Year
  Sex: Female

DRUGS (2)
  1. DIOVAN HCT [Suspect]
     Dosage: UNK UKN, UNK
  2. PERIDAL//DOMPERIDONE [Concomitant]
     Indication: GASTROOESOPHAGEAL REFLUX DISEASE
     Dosage: 2 DF (10MG), DAILY
     Route: 048

REACTIONS (4)
  - Deafness [Unknown]
  - Gastrooesophageal reflux disease [Recovering/Resolving]
  - Osteoporosis [Recovering/Resolving]
  - Pain in extremity [Recovering/Resolving]
